FAERS Safety Report 7641911-3 (Version None)
Quarter: 2011Q3

REPORT INFORMATION
  Report Type: 
  Country: None (occurrence: None)
  Receive Date: 20110728
  Receipt Date: 20110721
  Transmission Date: 20111222
  Serious: Yes (Other)
  Sender: FDA-Public Use
  Company Number: US-TEVA-291613USA

PATIENT
  Sex: Female

DRUGS (2)
  1. PHENTERMINE [Suspect]
  2. MEDROXYPROGESTERONE ACETATE [Suspect]
     Route: 030

REACTIONS (1)
  - HAEMORRHAGE [None]
